FAERS Safety Report 7675716-4 (Version None)
Quarter: 2011Q3

REPORT INFORMATION
  Report Type: 
  Country: None (occurrence: None)
  Receive Date: 20110810
  Receipt Date: 20110801
  Transmission Date: 20111222
  Serious: Yes (Hospitalization, Other)
  Sender: FDA-Public Use
  Company Number: US-BAYER-2011-026056

PATIENT
  Age: 41 Year
  Sex: Female
  Weight: 81.633 kg

DRUGS (4)
  1. MAXALT [Concomitant]
     Indication: MIGRAINE
     Dosage: UNK
     Dates: start: 20080701, end: 20090601
  2. IMITREX [Concomitant]
     Indication: MIGRAINE
     Dosage: UNK
     Dates: start: 20080701, end: 20090301
  3. DROSPIRENONE AND ETHINYL ESTRADIOL [Suspect]
     Indication: MIGRAINE
     Dosage: UNK
     Route: 048
     Dates: start: 20090325, end: 20090326
  4. YAZ [Suspect]
     Indication: MIGRAINE
     Dosage: UNK
     Route: 048
     Dates: start: 20080626, end: 20090324

REACTIONS (2)
  - CEREBROVASCULAR ACCIDENT [None]
  - CEREBRAL THROMBOSIS [None]
